FAERS Safety Report 8564512-1 (Version None)
Quarter: 2012Q3

REPORT INFORMATION
  Report Type: 
  Country: None (occurrence: None)
  Receive Date: 20120803
  Receipt Date: 20120723
  Transmission Date: 20120928
  Serious: Yes (Life-Threatening, Hospitalization, Other)
  Sender: FDA-Public Use
  Company Number: FR-BRISTOL-MYERS SQUIBB COMPANY-16802142

PATIENT
  Age: 67 Year
  Sex: Female

DRUGS (11)
  1. XANAX [Concomitant]
  2. BEPANTHENE [Concomitant]
  3. ABILIFY [Suspect]
     Indication: BIPOLAR DISORDER
     Route: 048
     Dates: start: 20120704
  4. ISENTRESS [Concomitant]
  5. RABEPRAZOLE SODIUM [Concomitant]
  6. MOTILIUM [Concomitant]
  7. ALUMINUM HYDROXIDE AND MAGNESIUM TRISILICATE [Concomitant]
  8. THERALENE [Concomitant]
  9. TRUVADA [Suspect]
  10. IMOVANE [Concomitant]
  11. ESCITALOPRAM [Concomitant]

REACTIONS (5)
  - RENAL FAILURE ACUTE [None]
  - DIARRHOEA [None]
  - HYPOKALAEMIA [None]
  - DYSKINESIA [None]
  - RHABDOMYOLYSIS [None]
